FAERS Safety Report 13421278 (Version 1)
Quarter: 2017Q2

REPORT INFORMATION
  Report Type: Spontaneous
  Country: US (occurrence: US)
  Receive Date: 20170410
  Receipt Date: 20170410
  Transmission Date: 20170830
  Serious: Yes (Other)
  Sender: FDA-Public Use
  Company Number: US-TEVA-751868USA

PATIENT
  Age: 59 Year
  Sex: Female
  Weight: 65.83 kg

DRUGS (5)
  1. PROAIR RESPICLICK [Suspect]
     Active Substance: ALBUTEROL SULFATE
     Indication: WHEEZING
     Dosage: TWO PUFFS TWICE A DAY
     Route: 055
     Dates: start: 20170315
  2. CLONAZEPAM. [Concomitant]
     Active Substance: CLONAZEPAM
  3. CRESTOR [Concomitant]
     Active Substance: ROSUVASTATIN CALCIUM
  4. METOPROLOL. [Concomitant]
     Active Substance: METOPROLOL
  5. LOSARTAN. [Concomitant]
     Active Substance: LOSARTAN

REACTIONS (6)
  - Cardiac murmur [Recovered/Resolved]
  - Heart rate irregular [Recovered/Resolved]
  - Wheezing [Unknown]
  - Cough [Unknown]
  - Heart rate increased [Recovered/Resolved]
  - Cardiac flutter [Recovered/Resolved]

NARRATIVE: CASE EVENT DATE: 20170316
